FAERS Safety Report 19732121 (Version 2)
Quarter: 2022Q3

REPORT INFORMATION
  Report Type: Spontaneous
  Country: US (occurrence: US)
  Receive Date: 20210820
  Receipt Date: 20220824
  Transmission Date: 20221026
  Serious: No
  Sender: FDA-Public Use
  Company Number: US-ARBOR PHARMACEUTICALS, LLC-US-2021ARB000605

PATIENT
  Sex: Female
  Weight: 51 kg

DRUGS (3)
  1. TRIPTODUR [Suspect]
     Active Substance: TRIPTORELIN
     Indication: Precocious puberty
     Dosage: UNK, SINGLE, EVERY 6 MONTHS
     Route: 030
     Dates: start: 20210518, end: 20210518
  2. TRIPTODUR [Suspect]
     Active Substance: TRIPTORELIN
  3. TRIPTODUR [Suspect]
     Active Substance: TRIPTORELIN

REACTIONS (8)
  - Pyrexia [Recovered/Resolved]
  - Dizziness [Unknown]
  - Chills [Recovered/Resolved]
  - Fatigue [Unknown]
  - Headache [Unknown]
  - Affect lability [Unknown]
  - Irritability [Unknown]
  - Crying [Unknown]

NARRATIVE: CASE EVENT DATE: 20210101
